FAERS Safety Report 11312383 (Version 1)
Quarter: 2015Q3

REPORT INFORMATION
  Report Type: Spontaneous
  Country: US (occurrence: None)
  Receive Date: 20150724
  Receipt Date: 20150724
  Transmission Date: 20151125
  Serious: No
  Sender: FDA-Public Use
  Company Number: None

PATIENT
  Age: 47 Year
  Sex: Female

DRUGS (2)
  1. CHLORHEXADINE [Suspect]
     Active Substance: CHLORHEXIDINE
     Indication: PREMEDICATION
     Route: 061
     Dates: start: 20150319, end: 20150319
  2. OMEPRAZOLE. [Concomitant]
     Active Substance: OMEPRAZOLE

REACTIONS (3)
  - Application site rash [None]
  - Paraesthesia oral [None]
  - Application site pain [None]

NARRATIVE: CASE EVENT DATE: 20150319
